FAERS Safety Report 18717266 (Version 3)
Quarter: 2022Q2

REPORT INFORMATION
  Report Type: Spontaneous
  Country: GB (occurrence: GB)
  Receive Date: 20210108
  Receipt Date: 20220617
  Transmission Date: 20220721
  Serious: Yes (Hospitalization, Other)
  Sender: FDA-Public Use
  Company Number: None

PATIENT
  Age: 35 Year
  Sex: Female
  Weight: 115 kg

DRUGS (15)
  1. CARBOPLATIN [Suspect]
     Active Substance: CARBOPLATIN
     Dosage: UNK
     Route: 065
  2. DOCETAXEL [Suspect]
     Active Substance: DOCETAXEL
     Dosage: UNK
     Route: 065
  3. TRASTUZUMAB [Suspect]
     Active Substance: TRASTUZUMAB
     Dosage: UNK
  4. PERJETA [Suspect]
     Active Substance: PERTUZUMAB
     Dosage: UNK
     Route: 065
  5. BENZYDAMINE HYDROCHLORIDE [Concomitant]
     Active Substance: BENZYDAMINE HYDROCHLORIDE
     Dosage: UNK
  6. CODEINE [Concomitant]
     Active Substance: CODEINE
     Dosage: UNK
  7. DEXAMETHASONE [Concomitant]
     Active Substance: DEXAMETHASONE
     Route: 065
  8. FEXOFENADINE [Concomitant]
     Active Substance: FEXOFENADINE HYDROCHLORIDE
  9. BECLOMETHASONE\FORMOTEROL [Concomitant]
     Active Substance: BECLOMETHASONE\FORMOTEROL
  10. LOPERAMIDE [Concomitant]
     Active Substance: LOPERAMIDE
  11. POLYETHYLENE GLYCOL 3350 [Concomitant]
     Active Substance: POLYETHYLENE GLYCOL 3350
  12. METOCLOPRAMIDE [Concomitant]
     Active Substance: METOCLOPRAMIDE
     Dosage: UNK
  13. PAROXETINE [Concomitant]
     Active Substance: PAROXETINE
     Dosage: UNK
  14. RAMIPRIL [Concomitant]
     Active Substance: RAMIPRIL
     Dosage: UNK
  15. ALBUTEROL [Concomitant]
     Active Substance: ALBUTEROL
     Dosage: UNK

REACTIONS (1)
  - Sepsis [Unknown]
